FAERS Safety Report 8369998-3 (Version None)
Quarter: 2012Q2

REPORT INFORMATION
  Report Type: 
  Country: None (occurrence: None)
  Receive Date: 20120518
  Receipt Date: 20120508
  Transmission Date: 20120825
  Serious: Yes (Other)
  Sender: FDA-Public Use
  Company Number: DE-FRI-1000030523

PATIENT
  Sex: Female

DRUGS (4)
  1. MAXIMA MD [Concomitant]
     Indication: CONTRACEPTION
  2. FOSFOMYCIN [Suspect]
     Indication: CYSTITIS
     Route: 048
     Dates: start: 20120506, end: 20120506
  3. ERGOCALCIFEROL [Concomitant]
     Indication: VITAMIN D DEFICIENCY
     Dosage: 1000 MG
  4. SYMBICORT [Concomitant]
     Indication: ASTHMA

REACTIONS (5)
  - ABDOMINAL PAIN LOWER [None]
  - FATIGUE [None]
  - DIARRHOEA [None]
  - VOMITING [None]
  - ASTHENIA [None]
